FAERS Safety Report 8983817 (Version 2)
Quarter: 2013Q1

REPORT INFORMATION
  Report Type: Report from Study
  Country: FR (occurrence: FR)
  Receive Date: 20121224
  Receipt Date: 20130107
  Transmission Date: 20140127
  Serious: Yes (Death, Hospitalization)
  Sender: FDA-Public Use
  Company Number: FR-ROCHE-1170984

PATIENT
  Age: 44 Year
  Sex: Male
  Weight: 70 kg

DRUGS (4)
  1. PEG-INTERFERON ALFA 2A [Suspect]
     Indication: CHRONIC HEPATITIS C
     Dosage: DRUG NAME: PEGASYS
     Route: 065
     Dates: start: 20101229, end: 20110524
  2. RIBAVIRIN [Suspect]
     Indication: CHRONIC HEPATITIS C
     Dosage: DRUG NAME: COPEGUS
     Route: 065
     Dates: start: 20101229, end: 20110524
  3. AVLOCARDYL L.P. [Concomitant]
     Indication: PORTAL HYPERTENSION
     Route: 065
     Dates: start: 20101207, end: 20110525
  4. LANZOPRAL [Concomitant]
     Indication: GASTROOESOPHAGEAL REFLUX DISEASE
     Route: 065
     Dates: start: 20101207, end: 20110525

REACTIONS (1)
  - Hepatic encephalopathy [Fatal]
